FAERS Safety Report 12143315 (Version 1)
Quarter: 2016Q1

REPORT INFORMATION
  Report Type: Spontaneous
  Country: US (occurrence: US)
  Receive Date: 20160304
  Receipt Date: 20160304
  Transmission Date: 20160526
  Serious: No
  Sender: FDA-Public Use
  Company Number: US-ASTRAZENECA-2016SE21683

PATIENT
  Sex: Male

DRUGS (1)
  1. NEXIUM 24HR [Suspect]
     Active Substance: ESOMEPRAZOLE MAGNESIUM
     Dosage: 1 DF, DAILY, ONE LAST NIGHT AND ONE THIS MORNING
     Route: 048
     Dates: start: 20160204

REACTIONS (2)
  - Intentional product misuse [Unknown]
  - Urticaria [Unknown]
